FAERS Safety Report 9527979 (Version 2)
Quarter: 2013Q3

REPORT INFORMATION
  Report Type: Report from Study
  Country: DE (occurrence: DE)
  Receive Date: 20130917
  Receipt Date: 20130923
  Transmission Date: 20140515
  Serious: Yes (Hospitalization)
  Sender: FDA-Public Use
  Company Number: DE-ROCHE-1273877

PATIENT
  Age: 66 Year
  Sex: Female
  Weight: 103 kg

DRUGS (9)
  1. TRASTUZUMAB [Suspect]
     Indication: BREAST CANCER
     Dosage: LAST DOSE PRIOR TO ONSE OF SAE: 02/SEP/2013
     Route: 042
     Dates: start: 20130819
  2. DOCETAXEL [Suspect]
     Indication: BREAST CANCER
     Dosage: LAST DOSE PRIOR TO ONSET OF SAE: 02/SEP/2013
     Route: 042
     Dates: start: 20130819
  3. EPIRUBICIN HYDROCHLORIDE [Suspect]
     Indication: BREAST CANCER
     Dosage: LAST DOSE PRIOR TO ONSET OF SAE: 29/JUL/2013
     Route: 042
     Dates: start: 20130617, end: 20130729
  4. CYCLOPHOSPHAMIDE [Suspect]
     Indication: BREAST CANCER
     Dosage: LAST DOSE PRIOR TO ONSET OF SAE: 29/JUL/2013
     Route: 042
     Dates: start: 20130617, end: 20130729
  5. ERYPO [Concomitant]
     Dosage: TOTAL DIALY DOSE:  40000IE
     Route: 065
     Dates: start: 20130906, end: 20130906
  6. DEXAMETHASONE [Concomitant]
     Dosage: TOTAL DIALY DOSE:  8/4 MG
     Route: 065
     Dates: start: 20130902, end: 20130905
  7. EMEND [Concomitant]
     Dosage: TOTAL DAILY DOSE: 125/80 MG?DRUG NAME REPORTED: EMEND COMBI
     Route: 065
     Dates: start: 20130902, end: 20130904
  8. NEULASTA [Concomitant]
     Route: 065
     Dates: start: 20130903, end: 20130903
  9. FERRLECIT (GERMANY) [Concomitant]
     Route: 065
     Dates: start: 20130906, end: 20130906

REACTIONS (1)
  - Hypotonia [Recovered/Resolved]
